FAERS Safety Report 12377426 (Version 3)
Quarter: 2016Q3

REPORT INFORMATION
  Report Type: Spontaneous
  Country: US (occurrence: US)
  Receive Date: 20160517
  Receipt Date: 20160718
  Transmission Date: 20161109
  Serious: No
  Sender: FDA-Public Use
  Company Number: US-PFIZER INC-2016258209

PATIENT
  Age: 85 Year
  Sex: Female
  Weight: 81.19 kg

DRUGS (8)
  1. BROMIDINE [Concomitant]
     Dosage: 1 DROP IN EACH EYE
     Route: 047
     Dates: start: 201603
  2. GENERIC METAMUCIL [Concomitant]
     Indication: CONSTIPATION
     Dosage: 17CM DISSOLVED IN WATER DAILY
     Dates: start: 20160501
  3. FUROSEMIDE. [Concomitant]
     Active Substance: FUROSEMIDE
     Indication: CARDIAC DISORDER
     Dosage: 1 PILL DAILY
     Dates: start: 201605
  4. CENTRUM SILVER [Concomitant]
     Active Substance: MINERALS\VITAMINS
     Indication: VITAMIN SUPPLEMENTATION
     Dosage: 1 PILL EVERY DAY
  5. ALEVE [Concomitant]
     Active Substance: NAPROXEN SODIUM
     Indication: PAIN
     Dosage: UNK, AS NEEDED
  6. BAYER ASPIRIN [Concomitant]
     Active Substance: ASPIRIN
     Indication: CARDIAC DISORDER
     Dosage: 1 PILL EVERY DAY
     Dates: start: 2015
  7. LATANOPROST PFIZER [Concomitant]
     Active Substance: LATANOPROST
     Indication: GLAUCOMA
     Dosage: 1 DROP IN EACH EYE AT NIGHT
     Route: 047
  8. ADVIL [Suspect]
     Active Substance: IBUPROFEN
     Indication: PAIN
     Dosage: THREE TABLET IN THE MORNING
     Dates: start: 201604

REACTIONS (4)
  - Product taste abnormal [Not Recovered/Not Resolved]
  - Dry mouth [Not Recovered/Not Resolved]
  - Product use issue [Not Recovered/Not Resolved]
  - Dysgeusia [Not Recovered/Not Resolved]

NARRATIVE: CASE EVENT DATE: 201604
